FAERS Safety Report 15876565 (Version 2)
Quarter: 2019Q1

REPORT INFORMATION
  Report Type: Spontaneous
  Country: US (occurrence: US)
  Receive Date: 20190127
  Receipt Date: 20190319
  Transmission Date: 20190417
  Serious: Yes (Life-Threatening, Hospitalization, Other)
  Sender: FDA-Public Use
  Company Number: US-DRREDDYS-USA/USA/19/0107194

PATIENT
  Age: 39 Year
  Sex: Male

DRUGS (5)
  1. PREDNISONE. [Suspect]
     Active Substance: PREDNISONE
     Indication: IMMUNOSUPPRESSANT DRUG THERAPY
  2. TACROLIMUS. [Suspect]
     Active Substance: TACROLIMUS
     Indication: IMMUNOSUPPRESSANT DRUG THERAPY
  3. MYCOPHENOLATE MOFETIL. [Suspect]
     Active Substance: MYCOPHENOLATE MOFETIL
     Dosage: IMMUNOSUPPRESSIVE MEDICATION WAS RESUMED AT PRE-HOSPITALIZATION DOSES
  4. MYCOPHENOLATE MOFETIL. [Suspect]
     Active Substance: MYCOPHENOLATE MOFETIL
     Indication: IMMUNOSUPPRESSANT DRUG THERAPY
  5. TACROLIMUS. [Suspect]
     Active Substance: TACROLIMUS
     Dosage: IMMUNOSUPPRESSIVE MEDICATION WAS RESUMED AT PRE-HOSPITALIZATION DOSES

REACTIONS (4)
  - Meningoencephalitis viral [Recovering/Resolving]
  - Hydrocephalus [Recovering/Resolving]
  - Urinary retention [Recovering/Resolving]
  - Choriomeningitis lymphocytic [Recovering/Resolving]
